FAERS Safety Report 7791764-8 (Version None)
Quarter: 2011Q4

REPORT INFORMATION
  Report Type: 
  Country: None (occurrence: None)
  Receive Date: 20111003
  Receipt Date: 20110927
  Transmission Date: 20120403
  Serious: No
  Sender: FDA-Public Use
  Company Number: US-PFIZER INC-2011210008

PATIENT
  Sex: Female
  Weight: 98.413 kg

DRUGS (16)
  1. GLYBURIDE [Concomitant]
     Indication: DIABETES MELLITUS
     Dosage: UNK
  2. LAMICTAL [Concomitant]
     Indication: BIPOLAR DISORDER
     Dosage: UNK
  3. ATENOLOL [Concomitant]
     Indication: HYPERTENSION
     Dosage: UNK
  4. TIZANIDINE [Concomitant]
     Dosage: UNK
  5. SYNTHROID [Concomitant]
     Indication: HYPOTHYROIDISM
     Dosage: UNK
  6. HYDROCODONE [Concomitant]
     Indication: PAIN
     Dosage: UNK
  7. FLONASE [Concomitant]
     Dosage: UNK
  8. CELEBREX [Suspect]
     Indication: ARTHRITIS
     Dosage: 200 MG, 1X/DAY
     Route: 048
     Dates: start: 20110701
  9. GLIMEPIRIDE [Concomitant]
     Indication: DIABETES MELLITUS
     Dosage: UNK
  10. WELLBUTRIN [Concomitant]
     Indication: BIPOLAR DISORDER
     Dosage: UNK
  11. CLONIDINE [Concomitant]
     Indication: BIPOLAR DISORDER
     Dosage: UNK
  12. NORVASC [Concomitant]
     Indication: HYPERTENSION
     Dosage: UNK
  13. ALISKIREN [Concomitant]
     Indication: HYPERTENSION
     Dosage: UNK
  14. PREMARIN [Concomitant]
     Dosage: UNK
  15. LITHIUM [Concomitant]
     Indication: BIPOLAR DISORDER
     Dosage: UNK
  16. NAMENDA [Concomitant]
     Indication: MEMORY IMPAIRMENT
     Dosage: UNK

REACTIONS (1)
  - DRUG INEFFECTIVE [None]
